FAERS Safety Report 5786670-4 (Version None)
Quarter: 2008Q2

REPORT INFORMATION
  Report Type: 
  Country: None (occurrence: None)
  Receive Date: 20080624
  Receipt Date: 20080623
  Transmission Date: 20081010
  Serious: Yes (Death, Hospitalization)
  Sender: FDA-Public Use
  Company Number: JP-ABBOTT-08P-087-0455168-00

PATIENT
  Age: 60 Year
  Sex: Male

DRUGS (8)
  1. KALETRA [Suspect]
     Indication: HIV INFECTION
     Route: 048
     Dates: start: 20061108, end: 20071005
  2. KALETRA [Suspect]
     Route: 048
     Dates: start: 20020723
  3. NORVIR [Suspect]
     Indication: HIV INFECTION
     Dosage: 4 CAPSULES DAILY
     Route: 048
     Dates: start: 20071205, end: 20080226
  4. EFAVIRENZ [Suspect]
     Indication: HIV INFECTION
     Route: 048
     Dates: start: 20010207, end: 20071005
  5. DARUNAVIR [Suspect]
     Indication: HIV INFECTION
     Route: 048
     Dates: start: 20071205, end: 20080226
  6. FLUCONAZOLE [Suspect]
     Indication: INFECTION PROPHYLAXIS
     Route: 065
     Dates: start: 20071112, end: 20080226
  7. BACTRIM [Suspect]
     Indication: ANTIFUNGAL PROPHYLAXIS
     Route: 065
     Dates: end: 20080226
  8. BACTRIM [Suspect]

REACTIONS (23)
  - ASCITES [None]
  - ATAXIA [None]
  - COMPUTERISED TOMOGRAM ABNORMAL [None]
  - DEHYDRATION [None]
  - DIARRHOEA [None]
  - DRUG ADMINISTRATION ERROR [None]
  - DYSPNOEA [None]
  - FUNGAL INFECTION [None]
  - HYPOKALAEMIA [None]
  - INFLAMMATION [None]
  - INTERSTITIAL LUNG DISEASE [None]
  - MALNUTRITION [None]
  - NAUSEA [None]
  - OXYGEN CONSUMPTION DECREASED [None]
  - PLEURAL EFFUSION [None]
  - PNEUMOCYSTIS JIROVECI PNEUMONIA [None]
  - PNEUMONIA [None]
  - PYREXIA [None]
  - RESPIRATORY ARREST [None]
  - RESPIRATORY RATE DECREASED [None]
  - STAPHYLOCOCCAL INFECTION [None]
  - TREATMENT NONCOMPLIANCE [None]
  - VOMITING [None]
